FAERS Safety Report 8782350 (Version 1)
Quarter: 2012Q4

REPORT INFORMATION
  Report Type: 
  Country: US (occurrence: US)
  Receive Date: 20120913
  Receipt Date: 20120913
  Transmission Date: 20130627
  Serious: No
  Sender: FDA-Public Use
  Company Number: US-VERTEX PHARMACEUTICAL INC.-2012-019876

PATIENT
  Age: 45 Year
  Sex: Female
  Weight: 102 kg

DRUGS (15)
  1. INCIVEK [Suspect]
     Indication: HEPATITIS C
     Dosage: 750 mg, tid
     Route: 048
     Dates: start: 20120810
  2. RIBAVIRIN [Concomitant]
     Indication: HEPATITIS C
     Dosage: 600 mg, bid
     Route: 048
     Dates: start: 20120810
  3. PEGASYS [Concomitant]
     Indication: HEPATITIS C
     Dosage: 180 ?g, UNK
     Route: 058
     Dates: start: 20120810
  4. AMLODIPINE [Concomitant]
     Indication: HYPERTENSION
     Dosage: UNK, qd
     Route: 048
  5. LYRICA [Concomitant]
     Route: 048
  6. TRAMADOL [Concomitant]
     Route: 048
  7. BUSPAR [Concomitant]
     Route: 048
  8. HYDROXYZINE [Concomitant]
     Route: 048
  9. HYDROCHLOROTHIAZIDE [Concomitant]
     Route: 048
  10. PROZAC [Concomitant]
     Route: 048
  11. NEXIUM                             /01479302/ [Concomitant]
     Route: 048
  12. IBUPROFEN [Concomitant]
     Dosage: 800 mg, UNK
  13. MULTIPLE VITAMINS [Concomitant]
     Route: 048
  14. FOLIC ACID [Concomitant]
     Route: 048
  15. THIAMINE [Concomitant]
     Route: 048

REACTIONS (7)
  - Headache [Not Recovered/Not Resolved]
  - Pain [Not Recovered/Not Resolved]
  - Arthralgia [Not Recovered/Not Resolved]
  - Paraesthesia [Not Recovered/Not Resolved]
  - Abdominal discomfort [Not Recovered/Not Resolved]
  - Alopecia [Not Recovered/Not Resolved]
  - Pruritus [Not Recovered/Not Resolved]
